FAERS Safety Report 13256379 (Version 1)
Quarter: 2017Q1

REPORT INFORMATION
  Report Type: Spontaneous
  Country: GB (occurrence: GB)
  Receive Date: 20170221
  Receipt Date: 20170221
  Transmission Date: 20170428
  Serious: Yes (Other)
  Sender: FDA-Public Use
  Company Number: GB-PFIZER INC-2017069938

PATIENT
  Age: 54 Year
  Sex: Male
  Weight: 111 kg

DRUGS (1)
  1. AMLODIPINE BESILATE [Suspect]
     Active Substance: AMLODIPINE BESYLATE
     Indication: HYPERTENSION
     Dosage: 10 MG, UNK
     Route: 048
     Dates: start: 20161001, end: 20170115

REACTIONS (5)
  - Depression [Recovered/Resolved with Sequelae]
  - Anger [Recovered/Resolved with Sequelae]
  - Hostility [Recovered/Resolved with Sequelae]
  - Aggression [Recovered/Resolved with Sequelae]
  - Abnormal behaviour [Recovered/Resolved with Sequelae]

NARRATIVE: CASE EVENT DATE: 20161015
